FAERS Safety Report 20492815 (Version 2)
Quarter: 2022Q1

REPORT INFORMATION
  Report Type: Other
  Country: CA (occurrence: None)
  Receive Date: 20220219
  Receipt Date: 20220303
  Transmission Date: 20220423
  Serious: No
  Sender: FDA-Public Use
  Company Number: CA-ROCHE-2673718

PATIENT
  Age: 39 Year
  Sex: Female
  Weight: 89.892 kg

DRUGS (19)
  1. OCREVUS [Suspect]
     Active Substance: OCRELIZUMAB
     Indication: Primary progressive multiple sclerosis
     Dosage: 300 MG AT DAY 0 AND 14, THEN 600 MG EVERY 6 MONTH; FORMULATION: 30 MG/ML
     Route: 042
     Dates: start: 20200904
  2. OCREVUS [Suspect]
     Active Substance: OCRELIZUMAB
     Dosage: ON 11/MAR/2021, SHE AGAIN RECEIVED OCRELIZUMAB INFUSION.
     Route: 042
     Dates: start: 20200912
  3. AMITRIPTYLINE [Concomitant]
     Active Substance: AMITRIPTYLINE
  4. LEVOTHYROXINE [Concomitant]
     Active Substance: LEVOTHYROXINE
     Indication: Hypothyroidism
  5. DALFAMPRIDINE [Concomitant]
     Active Substance: DALFAMPRIDINE
  6. NALTREXONE [Concomitant]
     Active Substance: NALTREXONE
     Indication: Pain
  7. SERTRALINE [Concomitant]
     Active Substance: SERTRALINE HYDROCHLORIDE
     Indication: Anxiety
  8. SERTRALINE [Concomitant]
     Active Substance: SERTRALINE HYDROCHLORIDE
     Indication: Depression
  9. BACLOFEN [Concomitant]
     Active Substance: BACLOFEN
     Indication: Muscle spasticity
  10. MAGNESIUM [Concomitant]
     Active Substance: MAGNESIUM
  11. OMEGA 3 [Concomitant]
     Active Substance: CAPSAICIN
  12. CANNABIDIOL\HERBALS [Concomitant]
     Active Substance: CANNABIDIOL\HERBALS
     Indication: Pain
  13. VITAMIN D3 [Concomitant]
     Active Substance: CHOLECALCIFEROL
  14. MENAQUINONE 6 [Concomitant]
     Active Substance: MENAQUINONE 6
  15. VITAMIN C [Concomitant]
     Active Substance: ASCORBIC ACID
  16. VITAMIN B12 [Concomitant]
     Active Substance: CYANOCOBALAMIN
  17. GABAPENTIN [Concomitant]
     Active Substance: GABAPENTIN
  18. LYRICA [Concomitant]
     Active Substance: PREGABALIN
  19. COVID-19 VACCINE [Concomitant]
     Dates: start: 20220115

REACTIONS (5)
  - Infusion related reaction [Recovered/Resolved]
  - Neuralgia [Not Recovered/Not Resolved]
  - Pain [Not Recovered/Not Resolved]
  - Musculoskeletal pain [Not Recovered/Not Resolved]
  - COVID-19 [Recovered/Resolved]

NARRATIVE: CASE EVENT DATE: 20200904
